FAERS Safety Report 19151831 (Version 2)
Quarter: 2021Q2

REPORT INFORMATION
  Report Type: Spontaneous
  Country: US (occurrence: US)
  Receive Date: 20210419
  Receipt Date: 20210508
  Transmission Date: 20210717
  Serious: No
  Sender: FDA-Public Use
  Company Number: US-AMGEN-USASP2020214131

PATIENT
  Age: 55 Year
  Sex: Female

DRUGS (10)
  1. CYMBALTA [Concomitant]
     Active Substance: DULOXETINE HYDROCHLORIDE
     Dosage: UNK
  2. NORCO [Concomitant]
     Active Substance: ACETAMINOPHEN\HYDROCODONE BITARTRATE
     Dosage: UNK
  3. MELOXICAM. [Concomitant]
     Active Substance: MELOXICAM
     Dosage: UNK
  4. BETAMETHASON [BETAMETHASONE] [Concomitant]
     Active Substance: BETAMETHASONE
     Dosage: UNK
  5. ENBREL [Suspect]
     Active Substance: ETANERCEPT
     Dosage: 50 MILLIGRAM, 2 TIMES/WK
     Route: 058
  6. LEVOTHYROXINE SODIUM. [Concomitant]
     Active Substance: LEVOTHYROXINE SODIUM
     Dosage: UNK
  7. BUSPIRONE HCL [Concomitant]
     Active Substance: BUSPIRONE HYDROCHLORIDE
     Dosage: UNK
  8. ENBREL [Suspect]
     Active Substance: ETANERCEPT
     Indication: VITAMIN B COMPLEX DEFICIENCY
     Dosage: 50 MILLIGRAM, 2 TIMES/WK
     Route: 058
     Dates: start: 20200912
  9. BACLOFEN. [Concomitant]
     Active Substance: BACLOFEN
     Dosage: UNK
  10. NEURONTIN [Concomitant]
     Active Substance: GABAPENTIN
     Dosage: UNK

REACTIONS (5)
  - Urinary tract infection [Recovered/Resolved]
  - Injection site bruising [Unknown]
  - Off label use [Unknown]
  - Psoriasis [Recovering/Resolving]
  - Injection site pruritus [Recovered/Resolved]

NARRATIVE: CASE EVENT DATE: 2020
